FAERS Safety Report 4432366-0 (Version None)
Quarter: 2004Q3

REPORT INFORMATION
  Report Type: 
  Country: None (occurrence: None)
  Receive Date: 20040820
  Receipt Date: 20040806
  Transmission Date: 20050211
  Serious: Yes (Hospitalization)
  Sender: FDA-Public Use
  Company Number: RENA-11122

PATIENT
  Age: 55 Year
  Sex: Male

DRUGS (5)
  1. RENAGEL [Suspect]
     Indication: HYPERPHOSPHATAEMIA
     Dosage: 0.5 G TID PO
     Route: 048
     Dates: start: 20031122, end: 20040526
  2. MAXACALCITOL [Concomitant]
  3. ALLOPURINOL [Concomitant]
  4. TRIAZOLAM [Concomitant]
  5. PARACETAMOL, PROMETHAZINE METHYLENE DISALICYLATE, SALICYLAMIDE [Concomitant]

REACTIONS (8)
  - ABDOMINAL PAIN LOWER [None]
  - ASCITES [None]
  - BLOOD PRESSURE SYSTOLIC INCREASED [None]
  - DIVERTICULITIS [None]
  - HAEMATOCRIT DECREASED [None]
  - HAEMOGLOBIN DECREASED [None]
  - RED BLOOD CELL COUNT DECREASED [None]
  - WHITE BLOOD CELL COUNT INCREASED [None]
